FAERS Safety Report 20543566 (Version 1)
Quarter: 2022Q1

REPORT INFORMATION
  Report Type: Spontaneous
  Country: IT (occurrence: IT)
  Receive Date: 20220302
  Receipt Date: 20220302
  Transmission Date: 20220423
  Serious: Yes (Other)
  Sender: FDA-Public Use
  Company Number: IT-BoehringerIngelheim-2022-BI-156361

PATIENT
  Age: 61 Year
  Sex: Male

DRUGS (7)
  1. DIPYRIDAMOLE [Suspect]
     Active Substance: DIPYRIDAMOLE
     Indication: Diagnostic procedure
     Dosage: 0.84 MG/KG,
     Route: 042
     Dates: start: 20211214, end: 20211214
  2. AMINOPHYLLINE [Suspect]
     Active Substance: AMINOPHYLLINE
     Indication: Diagnostic procedure
     Dates: start: 20211214, end: 20211214
  3. GADOBUTROL [Suspect]
     Active Substance: GADOBUTROL
     Indication: Magnetic resonance imaging
     Dosage: 1,0 MMOL/ML SOLUZIONE INIETTABILE
     Route: 042
     Dates: start: 20211214, end: 20211214
  4. ASPIRIN [Concomitant]
     Active Substance: ASPIRIN
     Indication: Product used for unknown indication
     Dosage: 1
     Route: 048
  5. BISOPROLOL HEMIFUMARATE BISOPROLOLO EMIFUMARATO [Concomitant]
     Indication: Product used for unknown indication
     Dosage: 2.5 MG
     Route: 048
  6. ROSUVASTATIN CALCIUM [Concomitant]
     Active Substance: ROSUVASTATIN CALCIUM
     Indication: Product used for unknown indication
     Dosage: 20 MG
     Route: 048
  7. PANTOPRAZOLE [Concomitant]
     Active Substance: PANTOPRAZOLE
     Indication: Product used for unknown indication
     Dosage: 20 MG

REACTIONS (2)
  - Rash [Recovered/Resolved]
  - Throat tightness [Recovered/Resolved]

NARRATIVE: CASE EVENT DATE: 20211215
